FAERS Safety Report 15122436 (Version 2)
Quarter: 2019Q1

REPORT INFORMATION
  Report Type: Spontaneous
  Country: FR (occurrence: FR)
  Receive Date: 20180709
  Receipt Date: 20190326
  Transmission Date: 20190417
  Serious: Yes (Other)
  Sender: FDA-Public Use
  Company Number: FR-TEVA-2018-FR-923191

PATIENT
  Age: 91 Year
  Sex: Female

DRUGS (8)
  1. PREVISCAN 20 MG, COMPRIM? S?CABLE [Concomitant]
     Active Substance: FLUINDIONE
  2. FUROSEMIDE. [Concomitant]
     Active Substance: FUROSEMIDE
  3. COVERSYL 2,5 MG, COMPRIM? PELLICUL? [Concomitant]
     Active Substance: PERINDOPRIL
  4. SALBUTAMOL [Concomitant]
     Active Substance: ALBUTEROL
  5. IPRATROPIUM (BROMURE D^) [Concomitant]
     Active Substance: IPRATROPIUM
  6. PULMICORT TURBUHALER [Concomitant]
     Active Substance: BUDESONIDE
  7. DOLIPRANE 100 MG, POUDRE POUR SOLUTION BUVABLE EN SACHET-DOSE [Concomitant]
  8. BISOPROLOL (FUMARATE DE) [Suspect]
     Active Substance: BISOPROLOL FUMARATE
     Indication: HYPERTENSION
     Dosage: 5 MILLIGRAM DAILY;
     Route: 048
     Dates: start: 201706, end: 20171116

REACTIONS (1)
  - Interstitial lung disease [Recovered/Resolved]

NARRATIVE: CASE EVENT DATE: 20170929
